FAERS Safety Report 6151556-2 (Version None)
Quarter: 2009Q2

REPORT INFORMATION
  Report Type: 
  Country: None (occurrence: None)
  Receive Date: 20090408
  Receipt Date: 20090325
  Transmission Date: 20091009
  Serious: Yes (Death, Other)
  Sender: FDA-Public Use
  Company Number: POMP-1000548

PATIENT
  Age: 1 Year
  Sex: Male
  Weight: 8 kg

DRUGS (1)
  1. MYOZYME [Suspect]
     Indication: GLYCOGEN STORAGE DISEASE TYPE II
     Dosage: 20 MG/KG, Q2W, INTRAVENOUS
     Route: 042
     Dates: start: 20080421, end: 20081120

REACTIONS (7)
  - ANXIETY [None]
  - DISEASE PROGRESSION [None]
  - INFUSION RELATED REACTION [None]
  - PNEUMONIA [None]
  - PYREXIA [None]
  - RASH [None]
  - URTICARIA [None]
